FAERS Safety Report 8610356-1 (Version None)
Quarter: 2012Q3

REPORT INFORMATION
  Report Type: 
  Country: None (occurrence: None)
  Receive Date: 20120822
  Receipt Date: 20120817
  Transmission Date: 20120928
  Serious: Yes (Other)
  Sender: FDA-Public Use
  Company Number: PHFR2012GB004561

PATIENT
  Age: 47 Year
  Sex: Male

DRUGS (2)
  1. IMATINIB MESYLATE [Suspect]
     Indication: CHRONIC MYELOID LEUKAEMIA
     Dosage: 400 MG, UNK
     Route: 048
  2. IMATINIB MESYLATE [Suspect]
     Dosage: 300 MG, UNK
     Route: 048

REACTIONS (6)
  - NUCLEAR MAGNETIC RESONANCE IMAGING BRAIN ABNORMAL [None]
  - HEADACHE [None]
  - CEREBRAL SMALL VESSEL ISCHAEMIC DISEASE [None]
  - CSF PROTEIN INCREASED [None]
  - DEAFNESS BILATERAL [None]
  - DIZZINESS [None]
